FAERS Safety Report 23285526 (Version 2)
Quarter: 2023Q4

REPORT INFORMATION
  Report Type: Spontaneous
  Country: JP (occurrence: JP)
  Receive Date: 20231211
  Receipt Date: 20231212
  Transmission Date: 20240110
  Serious: Yes (Life-Threatening, Hospitalization, Other)
  Sender: FDA-Public Use
  Company Number: None

PATIENT
  Age: 67 Year
  Sex: Male

DRUGS (9)
  1. DEXAMETHASONE [Suspect]
     Active Substance: DEXAMETHASONE
     Indication: Amyloidosis
     Dosage: 33 MG/D FOR FOUR DAYS PER COURSE (8 CYCLE)
     Route: 042
  2. DEXAMETHASONE [Suspect]
     Active Substance: DEXAMETHASONE
     Indication: Autologous haematopoietic stem cell transplant
     Dosage: 33 MILLIGRAM, 8 CYCLICAL, 33 MG/D FOR FOUR DAYS PER COURSE
     Route: 048
  3. PREDNISOLONE [Suspect]
     Active Substance: PREDNISOLONE
     Indication: Autologous haematopoietic stem cell transplant
     Dosage: 10 MILLIGRAM, QD
     Route: 065
  4. PREDNISOLONE [Suspect]
     Active Substance: PREDNISOLONE
     Indication: Immunosuppressant drug therapy
     Dosage: 5 MILLIGRAM, (5-10 MG/D) LOW-DOSE PREDNISOLONE
     Route: 065
  5. PREDNISOLONE [Suspect]
     Active Substance: PREDNISOLONE
     Dosage: 10 MILLIGRAM, (5-10 MG/D) LOW-DOSE PREDNISOLONE
     Route: 065
  6. MELPHALAN [Suspect]
     Active Substance: MELPHALAN
     Indication: Amyloidosis
     Dosage: 6 MILLIGRAM, CYCLICAL (6 MG/D FOR SIX DAYS PER COURSE (8 CYCLE))
     Route: 048
  7. MELPHALAN [Suspect]
     Active Substance: MELPHALAN
     Indication: Autologous haematopoietic stem cell transplant
     Dosage: 200 MILLIGRAM/SQ. METER
     Route: 065
  8. THALIDOMIDE [Suspect]
     Active Substance: THALIDOMIDE
     Indication: Autologous haematopoietic stem cell transplant
     Dosage: 50 MILLIGRAM PER DAY  FOR MAINTENANCE THERAPY, BEGAN TAKING THALIDOMIDE EVERY OTHER MONTH IN CONJUNC
     Route: 048
  9. THALIDOMIDE [Suspect]
     Active Substance: THALIDOMIDE
     Indication: Immunosuppressant drug therapy
     Dosage: BEGAN TAKING THALIDOMIDE EVERY OTHER MONTH IN CONJUNCTION WITH LOW-DOSE PREDNISOLONE
     Route: 048

REACTIONS (12)
  - Hypogammaglobulinaemia [Not Recovered/Not Resolved]
  - Lymphopenia [Not Recovered/Not Resolved]
  - Facial paralysis [Unknown]
  - Myelosuppression [Not Recovered/Not Resolved]
  - Speech disorder [Unknown]
  - Paresis [Unknown]
  - Neurologic neglect syndrome [Unknown]
  - Aphasia [Unknown]
  - Extensor plantar response [Unknown]
  - Progressive multifocal leukoencephalopathy [Not Recovered/Not Resolved]
  - JC virus infection [Not Recovered/Not Resolved]
  - Muscular weakness [Unknown]
